FAERS Safety Report 19400140 (Version 1)
Quarter: 2021Q2

REPORT INFORMATION
  Report Type: Other
  Country: US (occurrence: US)
  Receive Date: 20210610
  Receipt Date: 20210610
  Transmission Date: 20210717
  Serious: Yes (Other)
  Sender: FDA-Public Use
  Company Number: US-APOTEX-2021AP012160

PATIENT
  Age: 11 Year
  Sex: Male

DRUGS (5)
  1. GUANFACINE EXTENDED RELEASE TABLET [Suspect]
     Active Substance: GUANFACINE
     Indication: ATTENTION DEFICIT HYPERACTIVITY DISORDER
  2. RISPERDAL [Concomitant]
     Active Substance: RISPERIDONE
     Indication: EMOTIONAL DISORDER
     Dosage: 0.25 MILLIGRAM, Q.H.S.
     Route: 065
  3. GUANFACINE EXTENDED RELEASE TABLET [Suspect]
     Active Substance: GUANFACINE
     Indication: ANXIETY
     Dosage: 2 MILLIGRAM, Q.H.S.
     Route: 065
  4. MELATONIN [Concomitant]
     Active Substance: MELATONIN
     Indication: SLEEP DISORDER
     Dosage: 3 MILLIGRAM, Q.H.S.
     Route: 065
  5. GUANFACINE EXTENDED RELEASE TABLET [Suspect]
     Active Substance: GUANFACINE
     Indication: MIGRAINE

REACTIONS (12)
  - Suicide threat [Recovered/Resolved]
  - Panic attack [Recovered/Resolved]
  - Somnolence [Recovered/Resolved]
  - Migraine [Recovered/Resolved]
  - Behaviour disorder [Recovered/Resolved]
  - Recalled product administered [Recovered/Resolved]
  - Anxiety [Recovered/Resolved]
  - Suicidal ideation [Recovered/Resolved]
  - Dizziness [Recovered/Resolved]
  - Crying [Recovered/Resolved]
  - Epistaxis [Recovered/Resolved]
  - Aggression [Recovered/Resolved]

NARRATIVE: CASE EVENT DATE: 20210406
